FAERS Safety Report 14084678 (Version 1)
Quarter: 2017Q4

REPORT INFORMATION
  Report Type: Spontaneous
  Country: US (occurrence: None)
  Receive Date: 20171013
  Receipt Date: 20171013
  Transmission Date: 20180321
  Serious: Yes (Other)
  Sender: FDA-Public Use
  Company Number: None

PATIENT
  Age: 26 Year
  Sex: Female
  Weight: 71.67 kg

DRUGS (1)
  1. SUBOXONE [Suspect]
     Active Substance: BUPRENORPHINE HYDROCHLORIDE\NALOXONE HYDROCHLORIDE
     Indication: DRUG DEPENDENCE
     Dosage: DOSE - 12MG FILM?ROUTE - PO  SL
     Route: 048
     Dates: start: 20170919, end: 20170929

REACTIONS (3)
  - Mouth ulceration [None]
  - Product dosage form issue [None]
  - Suppressed lactation [None]

NARRATIVE: CASE EVENT DATE: 20170929
